FAERS Safety Report 5236369-8 (Version None)
Quarter: 2007Q1

REPORT INFORMATION
  Report Type: 
  Country: None (occurrence: None)
  Receive Date: 20070212
  Receipt Date: 20070131
  Transmission Date: 20070707
  Serious: Yes (Hospitalization, Other)
  Sender: FDA-Public Use
  Company Number: US-PFIZER INC-2007008685

PATIENT
  Age: 22 Year

DRUGS (3)
  1. DILANTIN [Suspect]
     Indication: CONVULSION
     Route: 048
  2. LAMICTAL [Suspect]
     Indication: CONVULSION
     Route: 048
  3. DEPAKOTE [Suspect]
     Indication: CONVULSION
     Route: 048

REACTIONS (5)
  - ACTIVITIES OF DAILY LIVING IMPAIRED [None]
  - CONVULSION [None]
  - DRUG INEFFECTIVE [None]
  - RASH [None]
  - URTICARIA [None]
